FAERS Safety Report 7054841-5 (Version None)
Quarter: 2010Q4

REPORT INFORMATION
  Report Type: 
  Country: None (occurrence: None)
  Receive Date: 20101021
  Receipt Date: 20101012
  Transmission Date: 20110411
  Serious: Yes (Hospitalization, Other)
  Sender: FDA-Public Use
  Company Number: US-BIOGENIDEC-2008BI035148

PATIENT
  Sex: Male
  Weight: 109 kg

DRUGS (4)
  1. AVONEX [Suspect]
     Indication: MULTIPLE SCLEROSIS
     Route: 030
     Dates: start: 20080301, end: 20090912
  2. AVONEX [Suspect]
     Route: 030
     Dates: start: 20100221
  3. COUMADIN [Concomitant]
     Indication: ARRHYTHMIA
     Dates: start: 20081201
  4. STEROIDS (NOS) [Concomitant]

REACTIONS (5)
  - ARRHYTHMIA [None]
  - BLOOD COUNT ABNORMAL [None]
  - DIZZINESS [None]
  - TREMOR [None]
  - WEIGHT INCREASED [None]
